FAERS Safety Report 19854821 (Version 1)
Quarter: 2021Q3

REPORT INFORMATION
  Report Type: Spontaneous
  Country: US (occurrence: US)
  Receive Date: 20210920
  Receipt Date: 20210920
  Transmission Date: 20211014
  Serious: Yes (Other)
  Sender: FDA-Public Use
  Company Number: US-AUROBINDO-AUR-APL-2021-009067

PATIENT
  Age: 79 Year
  Sex: Male
  Weight: 81 kg

DRUGS (2)
  1. ALPRAZOLAM TABLETS USP 0.5MG [Suspect]
     Active Substance: ALPRAZOLAM
     Dosage: 0.125 MILLIGRAM, AT BED TIME
     Route: 065
  2. ALPRAZOLAM TABLETS USP 0.5MG [Suspect]
     Active Substance: ALPRAZOLAM
     Indication: INSOMNIA
     Dosage: 0.25 MILLIGRAM, AT BED TIME
     Route: 065
     Dates: start: 20201101

REACTIONS (11)
  - Drug dependence [Unknown]
  - Muscle contractions involuntary [Recovered/Resolved]
  - Incorrect dose administered [Unknown]
  - Sleep disorder [Recovered/Resolved]
  - Insomnia [Not Recovered/Not Resolved]
  - Manufacturing materials issue [Unknown]
  - Head discomfort [Recovered/Resolved]
  - Product substitution issue [Unknown]
  - Headache [Recovered/Resolved]
  - Product size issue [Unknown]
  - Product dose omission issue [Unknown]
